FAERS Safety Report 5366311-0 (Version None)
Quarter: 2007Q2

REPORT INFORMATION
  Report Type: 
  Country: None (occurrence: None)
  Receive Date: 20070620
  Receipt Date: 20070620
  Transmission Date: 20071010
  Serious: Yes (Life-Threatening)
  Sender: FDA-Public Use
  Company Number: None

PATIENT
  Age: 48 Year
  Sex: Male
  Weight: 113.3993 kg

DRUGS (1)
  1. OXYCODONE   40 AND 30 MG  TEVA [Suspect]
     Indication: INTERVERTEBRAL DISC PROTRUSION
     Dosage: SEE ABOVE

REACTIONS (2)
  - DRUG INEFFECTIVE [None]
  - PHARMACEUTICAL PRODUCT COMPLAINT [None]
